FAERS Safety Report 21139855 (Version 2)
Quarter: 2022Q3

REPORT INFORMATION
  Report Type: Report from Study
  Country: US (occurrence: US)
  Receive Date: 20220728
  Receipt Date: 20220922
  Transmission Date: 20221027
  Serious: Yes (Hospitalization, Other)
  Sender: FDA-Public Use
  Company Number: US-ACADIA PHARMACEUTICALS INC.-ACA-2022-PIM-002404

PATIENT
  Age: 76 Year
  Sex: Male

DRUGS (13)
  1. NUPLAZID [Suspect]
     Active Substance: PIMAVANSERIN TARTRATE
     Indication: Hallucination
     Dosage: 34 MILLIGRAM, QD
     Route: 048
     Dates: start: 20211227
  2. NUPLAZID [Suspect]
     Active Substance: PIMAVANSERIN TARTRATE
     Indication: Parkinson^s disease
     Dosage: 34 MILLIGRAM, QD
     Route: 048
  3. AMANTADINE [Concomitant]
     Active Substance: AMANTADINE
  4. ARICEPT [Concomitant]
     Active Substance: DONEPEZIL HYDROCHLORIDE
  5. ASPIRIN [Concomitant]
     Active Substance: ASPIRIN
  6. FLOMAX [Concomitant]
     Active Substance: TAMSULOSIN HYDROCHLORIDE
  7. METOPROLOL [Concomitant]
     Active Substance: METOPROLOL
  8. VITAMINS NOS [Concomitant]
     Active Substance: VITAMINS
     Indication: Vitamin supplementation
  9. PERIACTIN [Concomitant]
     Active Substance: CYPROHEPTADINE HYDROCHLORIDE
  10. PREDNISONE [Concomitant]
     Active Substance: PREDNISONE
  11. DOXYCYCLINE [Concomitant]
     Active Substance: DOXYCYCLINE
  12. AMIODARONE [Concomitant]
     Active Substance: AMIODARONE
  13. ELIQUIS [Concomitant]
     Active Substance: APIXABAN

REACTIONS (9)
  - Atrial fibrillation [Not Recovered/Not Resolved]
  - Syncope [Recovered/Resolved]
  - Atrial fibrillation [Recovered/Resolved]
  - Bronchitis [Recovered/Resolved]
  - Bradycardia [Not Recovered/Not Resolved]
  - Ventricular tachycardia [Not Recovered/Not Resolved]
  - COVID-19 [Not Recovered/Not Resolved]
  - Product dose omission issue [Recovered/Resolved]
  - Product dose omission issue [Recovered/Resolved]

NARRATIVE: CASE EVENT DATE: 20220703
